FAERS Safety Report 7668258 (Version 5)
Quarter: 2013Q1

REPORT INFORMATION
  Report Type: Spontaneous
  Country: US (occurrence: US)
  Receive Date: 20101115
  Receipt Date: 20130122
  Transmission Date: 20140127
  Serious: Yes (Other)
  Sender: FDA-Public Use
  Company Number: US-ROCHE-718996

PATIENT
  Age: 38 Year
  Sex: Male
  Weight: 83.9 kg

DRUGS (5)
  1. ACCUTANE [Suspect]
     Indication: ACNE
     Route: 048
     Dates: start: 19940425, end: 19940509
  2. ACCUTANE [Suspect]
     Route: 048
     Dates: start: 19940510, end: 199412
  3. ACCUTANE [Suspect]
     Route: 048
     Dates: start: 20030529, end: 200310
  4. TYLENOL [Concomitant]
     Indication: HEADACHE
     Dosage: OTHER INDICATION- ACHES, RARELY USED
     Route: 065
  5. SUDAFED [Concomitant]
     Indication: SINUS CONGESTION
     Dosage: AS NEEDED
     Route: 065

REACTIONS (16)
  - Colitis ulcerative [Unknown]
  - Gastrointestinal injury [Unknown]
  - Inflammatory bowel disease [Unknown]
  - Depression [Unknown]
  - Suicidal ideation [Unknown]
  - Large intestine polyp [Unknown]
  - Headache [Unknown]
  - Blood cholesterol increased [Recovered/Resolved]
  - Skin papilloma [Unknown]
  - Prurigo [Unknown]
  - Xerosis [Unknown]
  - Skin irritation [Recovering/Resolving]
  - Acrochordon [Recovered/Resolved]
  - Seborrhoeic keratosis [Recovered/Resolved]
  - Blood triglycerides increased [Recovered/Resolved]
  - Fatigue [Unknown]
